FAERS Safety Report 24250440 (Version 1)
Quarter: 2024Q3

REPORT INFORMATION
  Report Type: Spontaneous
  Country: US (occurrence: US)
  Receive Date: 20240826
  Receipt Date: 20240826
  Transmission Date: 20241016
  Serious: No
  Sender: ROCHE
  Company Number: US-ROCHE-10000061355

PATIENT

DRUGS (2)
  1. CATHFLO ACTIVASE [Suspect]
     Active Substance: ALTEPLASE
     Indication: Pleural effusion
     Route: 034
     Dates: start: 20240819
  2. PULMOZYME [Suspect]
     Active Substance: DORNASE ALFA
     Indication: Pleural effusion
     Route: 034
     Dates: start: 20240819

REACTIONS (2)
  - No adverse event [Unknown]
  - Off label use [Unknown]

NARRATIVE: CASE EVENT DATE: 20240819
